FAERS Safety Report 7816648-8 (Version None)
Quarter: 2011Q4

REPORT INFORMATION
  Report Type: 
  Country: None (occurrence: None)
  Receive Date: 20111017
  Receipt Date: 20111006
  Transmission Date: 20120403
  Serious: Yes (Other)
  Sender: FDA-Public Use
  Company Number: CA-US-EMD SERONO, INC.-7030092

PATIENT
  Sex: Female

DRUGS (7)
  1. REBIF [Suspect]
     Indication: MULTIPLE SCLEROSIS
     Route: 058
     Dates: start: 20101029, end: 20110219
  2. LITHIUM [Concomitant]
  3. VIT B12 (VITAMIN B12) [Concomitant]
  4. REBIF [Suspect]
     Route: 058
     Dates: start: 20110407
  5. CELEXA [Concomitant]
  6. ELMIRON (BLADDER) [Concomitant]
  7. NOVATRIMEL DS [Concomitant]

REACTIONS (9)
  - MOBILITY DECREASED [None]
  - MUSCULAR WEAKNESS [None]
  - INJECTION SITE PRURITUS [None]
  - ABASIA [None]
  - DYSSTASIA [None]
  - INJECTION SITE ERYTHEMA [None]
  - ASTHENIA [None]
  - BALANCE DISORDER [None]
  - PAIN IN EXTREMITY [None]
